FAERS Safety Report 6069534-0 (Version None)
Quarter: 2009Q1

REPORT INFORMATION
  Report Type: 
  Country: None (occurrence: None)
  Receive Date: 20090204
  Receipt Date: 20090204
  Transmission Date: 20090719
  Serious: Yes (Hospitalization, Other)
  Sender: FDA-Public Use
  Company Number: None

PATIENT
  Age: 51 Year
  Sex: Male
  Weight: 72.5755 kg

DRUGS (2)
  1. ABILIFY [Suspect]
     Indication: BIPOLAR DISORDER
     Dosage: 5 MGS DAILY PO
     Route: 048
     Dates: start: 20080501, end: 20080830
  2. ABILIFY [Suspect]
     Indication: BIPOLAR DISORDER
     Dosage: 5 MGS DAILY PO
     Route: 048
     Dates: start: 20080530, end: 20080830

REACTIONS (6)
  - COGNITIVE DISORDER [None]
  - HALLUCINATION [None]
  - IMPAIRED WORK ABILITY [None]
  - LOSS OF EMPLOYMENT [None]
  - TREMOR [None]
  - WEIGHT DECREASED [None]
